FAERS Safety Report 4867675-4 (Version None)
Quarter: 2005Q4

REPORT INFORMATION
  Report Type: 
  Country: None (occurrence: None)
  Receive Date: 20051222
  Receipt Date: 20051222
  Transmission Date: 20060501
  Serious: Yes (Other)
  Sender: FDA-Public Use
  Company Number: None

PATIENT
  Age: 57 Year
  Sex: Female

DRUGS (1)
  1. TRILEPTAL [Suspect]
     Indication: CONVULSION
     Dosage: 150MG   BID   PO
     Route: 048
     Dates: start: 20050606, end: 20051130

REACTIONS (1)
  - HYPONATRAEMIA [None]
